FAERS Safety Report 6237904-3 (Version None)
Quarter: 2009Q2

REPORT INFORMATION
  Report Type: 
  Country: None (occurrence: None)
  Receive Date: 20090621
  Receipt Date: 20090610
  Transmission Date: 20091009
  Serious: Yes (Other)
  Sender: FDA-Public Use
  Company Number: BR-ALLERGAN-0908323US

PATIENT
  Sex: Female

DRUGS (1)
  1. ATROPINA [Suspect]
     Indication: EYE INFECTION
     Dosage: UNK, UNKNOWN
     Route: 047
     Dates: start: 20090605

REACTIONS (1)
  - BLINDNESS UNILATERAL [None]
